FAERS Safety Report 9228901 (Version 1)
Quarter: 2013Q2

REPORT INFORMATION
  Report Type: Spontaneous
  Country: US (occurrence: US)
  Receive Date: 20130412
  Receipt Date: 20130412
  Transmission Date: 20140414
  Serious: No
  Sender: FDA-Public Use
  Company Number: US-PFIZER INC-2013112147

PATIENT
  Age: 64 Year
  Sex: Female
  Weight: 70 kg

DRUGS (9)
  1. LEVOXYL [Suspect]
     Indication: HYPOTHYROIDISM
     Dosage: 150 UG, 1X/DAY
     Dates: start: 2001
  2. LEVOXYL [Suspect]
     Dosage: 100 UG, 1X/DAY
  3. LEVOXYL [Suspect]
     Dosage: 88 UG, UNK
  4. NORVASC [Concomitant]
     Indication: HYPERTENSION
     Dosage: 2.5 MG, 2X/DAY
  5. TOPROL XL [Concomitant]
     Indication: HYPERTENSION
     Dosage: 50 MG IN THE MORNING AND 100 MG IN NIGHT
  6. LASIX [Concomitant]
     Indication: HYPERTENSION
     Dosage: 20 MG, 1X/DAY
  7. KLOR-CON [Concomitant]
     Indication: HYPERTENSION
     Dosage: 20 MG, 1X/DAY
  8. MICARDIS [Concomitant]
     Indication: HYPERTENSION
     Dosage: 40 MG, 1X/DAY
  9. BABY ASPIRIN [Concomitant]
     Indication: HYPERTENSION
     Dosage: 81 MG, 1X/DAY

REACTIONS (5)
  - Thyroid function test abnormal [Recovered/Resolved]
  - Product quality issue [Recovered/Resolved]
  - Nausea [Recovered/Resolved]
  - Dizziness [Recovered/Resolved]
  - Nervousness [Recovered/Resolved]
